FAERS Safety Report 21797146 (Version 1)
Quarter: 2022Q4

REPORT INFORMATION
  Report Type: Spontaneous
  Country: GB (occurrence: GB)
  Receive Date: 20221230
  Receipt Date: 20221230
  Transmission Date: 20230113
  Serious: Yes (Hospitalization)
  Sender: FDA-Public Use
  Company Number: GB-STRIDES ARCOLAB LIMITED-2022SP017565

PATIENT
  Age: 69 Year
  Sex: Female

DRUGS (5)
  1. PREDNISOLONE [Suspect]
     Active Substance: PREDNISOLONE
     Indication: Liver transplant
     Dosage: UNK
     Route: 065
  2. PREDNISOLONE [Suspect]
     Active Substance: PREDNISOLONE
     Dosage: UNK
     Route: 065
  3. TACROLIMUS [Suspect]
     Active Substance: TACROLIMUS
     Indication: Liver transplant
     Dosage: UNK
     Route: 065
  4. TACROLIMUS [Suspect]
     Active Substance: TACROLIMUS
     Dosage: UNK
     Route: 065
  5. VALGANCICLOVIR HYDROCHLORIDE [Suspect]
     Active Substance: VALGANCICLOVIR HYDROCHLORIDE
     Indication: Epstein-Barr virus infection
     Dosage: UNK
     Route: 048

REACTIONS (12)
  - Cachexia [Unknown]
  - Inflammation [Unknown]
  - Kaposi^s sarcoma [Unknown]
  - Lymphadenopathy [Unknown]
  - Pulmonary mass [Unknown]
  - Interstitial lung disease [Unknown]
  - Hyponatraemia [Unknown]
  - Pancytopenia [Unknown]
  - Acute kidney injury [Unknown]
  - Pleural effusion [Unknown]
  - Human herpesvirus 8 infection [Unknown]
  - Off label use [Unknown]
